FAERS Safety Report 6875010-5 (Version None)
Quarter: 2010Q3

REPORT INFORMATION
  Report Type: 
  Country: None (occurrence: None)
  Receive Date: 20100727
  Receipt Date: 20100721
  Transmission Date: 20110219
  Serious: Yes (Hospitalization, Other)
  Sender: FDA-Public Use
  Company Number: JP-ABBOTT-09P-087-0585359-00

PATIENT
  Age: 46 Year
  Sex: Male

DRUGS (12)
  1. LOPINAVIR/RITONAVIR [Suspect]
     Indication: HIV INFECTION
     Route: 048
     Dates: start: 20081201
  2. LOPINAVIR/RITONAVIR [Suspect]
  3. TRUVADA [Concomitant]
     Indication: HIV INFECTION
     Route: 048
     Dates: start: 20081201
  4. TRUVADA [Concomitant]
  5. VALGANCICLOVIR [Concomitant]
     Indication: CYTOMEGALOVIRUS INFECTION
     Dates: start: 20081106, end: 20081116
  6. VALGANCICLOVIR [Concomitant]
     Route: 048
     Dates: start: 20081220, end: 20090101
  7. AZITHROMYCIN [Concomitant]
     Indication: OPPORTUNISTIC INFECTION PROPHYLAXIS
     Route: 048
     Dates: start: 20081018
  8. COTRIM [Concomitant]
     Indication: PNEUMOCYSTIS JIROVECI PNEUMONIA
     Route: 048
     Dates: start: 20081018, end: 20081130
  9. COTRIM [Concomitant]
     Dates: start: 20081201
  10. FLUCONAZOLE [Concomitant]
     Indication: FUNGAL INFECTION
     Dates: start: 20081018, end: 20090122
  11. FAMOTIDINE [Concomitant]
     Indication: PROPHYLAXIS AGAINST GASTROINTESTINAL ULCER
     Dates: start: 20081030, end: 20090122
  12. URSODIOL [Concomitant]
     Indication: LIVER DISORDER
     Dates: start: 20081030, end: 20081117

REACTIONS (4)
  - ADRENAL INSUFFICIENCY [None]
  - ADRENALITIS [None]
  - CYTOMEGALOVIRUS INFECTION [None]
  - IMMUNE RECONSTITUTION SYNDROME [None]
